FAERS Safety Report 10312505 (Version 2)
Quarter: 2014Q3

REPORT INFORMATION
  Report Type: Spontaneous
  Country: ES (occurrence: ES)
  Receive Date: 20140718
  Receipt Date: 20140718
  Transmission Date: 20150326
  Serious: Yes (Other)
  Sender: FDA-Public Use
  Company Number: ES-AMGEN INC.-ESPSP2014047456

PATIENT
  Age: 62 Year
  Sex: Female

DRUGS (5)
  1. COAPROVEL [Concomitant]
     Active Substance: HYDROCHLOROTHIAZIDE\IRBESARTAN
  2. OMEPRAZOLE. [Concomitant]
     Active Substance: OMEPRAZOLE
  3. FLATORIL                           /00807201/ [Concomitant]
  4. PROLIA [Suspect]
     Active Substance: DENOSUMAB
     Indication: PRODUCT USED FOR UNKNOWN INDICATION
     Dosage: UNK
     Route: 065
     Dates: start: 201405
  5. DEANXIT [Concomitant]
     Active Substance: FLUPENTIXOL DIHYDROCHLORIDE\MELITRACEN HYDROCHLORIDE

REACTIONS (5)
  - Humerus fracture [Unknown]
  - Urinary tract infection [Recovered/Resolved]
  - Sciatica [Recovered/Resolved]
  - Bone density abnormal [Unknown]
  - Respiratory disorder [Recovered/Resolved]
